FAERS Safety Report 16479354 (Version 1)
Quarter: 2019Q2

REPORT INFORMATION
  Report Type: Spontaneous
  Country: GB (occurrence: GB)
  Receive Date: 20190626
  Receipt Date: 20190626
  Transmission Date: 20190711
  Serious: Yes (Other)
  Sender: FDA-Public Use
  Company Number: GB-MYLANLABS-2019M1057725

PATIENT
  Age: 97 Year
  Sex: Female
  Weight: 52.61 kg

DRUGS (4)
  1. ADCAL                              /07357001/ [Concomitant]
     Active Substance: CALCIUM CARBONATE
     Dosage: UNK
  2. MELOXICAM. [Suspect]
     Active Substance: MELOXICAM
     Indication: SPINAL FRACTURE
     Dosage: 15 MILLIGRAM, QD
     Route: 048
     Dates: start: 20181215, end: 20181226
  3. CANDESARTAN CILEXETIL. [Concomitant]
     Active Substance: CANDESARTAN CILEXETIL
  4. ALENDRONIC ACID [Concomitant]
     Active Substance: ALENDRONIC ACID
     Dosage: UNK

REACTIONS (8)
  - Flatulence [Recovering/Resolving]
  - Constipation [Recovering/Resolving]
  - Somnolence [Recovering/Resolving]
  - Deafness [Recovering/Resolving]
  - Diarrhoea [Recovering/Resolving]
  - Oedema [Recovering/Resolving]
  - Pain [Unknown]
  - Abdominal pain upper [Recovering/Resolving]

NARRATIVE: CASE EVENT DATE: 20181219
